FAERS Safety Report 7268309-4 (Version None)
Quarter: 2011Q1

REPORT INFORMATION
  Report Type: 
  Country: None (occurrence: None)
  Receive Date: 20110201
  Receipt Date: 20110125
  Transmission Date: 20110831
  Serious: Yes (Hospitalization)
  Sender: FDA-Public Use
  Company Number: US-MERCK-1101USA00344

PATIENT
  Age: 80 Year
  Sex: Male

DRUGS (10)
  1. VYTORIN [Suspect]
     Indication: BLOOD CHOLESTEROL INCREASED
     Route: 048
     Dates: start: 20070101, end: 20100101
  2. DIOVAN [Concomitant]
     Route: 065
  3. KLONOPIN [Concomitant]
     Route: 065
  4. ASPIRIN [Concomitant]
     Route: 065
  5. VITAMIN D (UNSPECIFIED) [Concomitant]
     Route: 065
  6. FOLIC ACID [Concomitant]
     Route: 065
  7. VYTORIN [Suspect]
     Route: 048
     Dates: start: 20100101
  8. VITAMINS (UNSPECIFIED) [Concomitant]
     Route: 065
  9. PYRIDOXINE [Concomitant]
     Route: 065
  10. MIRAPEX [Concomitant]
     Route: 065

REACTIONS (4)
  - SPINAL COLUMN STENOSIS [None]
  - SPONDYLITIS [None]
  - FATIGUE [None]
  - MUSCULAR WEAKNESS [None]
